FAERS Safety Report 22106673 (Version 1)
Quarter: 2023Q1

REPORT INFORMATION
  Report Type: Spontaneous
  Country: US (occurrence: US)
  Receive Date: 20230317
  Receipt Date: 20230317
  Transmission Date: 20230418
  Serious: No
  Sender: FDA-Public Use
  Company Number: US-SANOFI-01523312

PATIENT
  Sex: Female

DRUGS (3)
  1. LANTUS [Suspect]
     Active Substance: INSULIN GLARGINE
     Dosage: 8 IU, QD
  2. HUMALOG [Concomitant]
     Active Substance: INSULIN LISPRO
  3. ARSENIC [Concomitant]
     Active Substance: ARSENIC

REACTIONS (3)
  - Headache [Unknown]
  - Flushing [Unknown]
  - Chest discomfort [Unknown]
